FAERS Safety Report 5319104-4 (Version None)
Quarter: 2007Q2

REPORT INFORMATION
  Report Type: 
  Country: None (occurrence: None)
  Receive Date: 20070508
  Receipt Date: 20070504
  Transmission Date: 20071010
  Serious: Yes (Other)
  Sender: FDA-Public Use
  Company Number: A0649965A

PATIENT
  Age: 64 Year
  Sex: Female

DRUGS (3)
  1. ADVAIR DISKUS 100/50 [Suspect]
     Indication: ASTHMA
     Dosage: 1PUFF PER DAY
     Route: 055
     Dates: start: 20040101
  2. ESTRADIOL [Concomitant]
  3. SYNTHROID [Concomitant]

REACTIONS (4)
  - CONTUSION [None]
  - DEPRESSION [None]
  - SENSORY DISTURBANCE [None]
  - SKIN ATROPHY [None]
